FAERS Safety Report 7434357-4 (Version None)
Quarter: 2011Q2

REPORT INFORMATION
  Report Type: 
  Country: None (occurrence: None)
  Receive Date: 20110425
  Receipt Date: 20110411
  Transmission Date: 20111010
  Serious: Yes (Death, Life-Threatening, Other)
  Sender: FDA-Public Use
  Company Number: JP-AMGEN-JPNCT2010005593

PATIENT
  Age: 77 Year
  Sex: Female
  Weight: 42 kg

DRUGS (14)
  1. MAGMITT [Concomitant]
     Indication: CONSTIPATION
     Route: 048
     Dates: start: 20100923, end: 20101103
  2. PANITUMUMAB [Suspect]
     Indication: COLORECTAL CANCER
     Dosage: 6 MG/KG, Q2WK
     Route: 041
     Dates: start: 20101025, end: 20101025
  3. DUROTEP MT [Concomitant]
     Indication: CANCER PAIN
     Route: 062
     Dates: start: 20101103, end: 20101112
  4. ANPEC [Concomitant]
     Indication: CANCER PAIN
     Route: 054
     Dates: start: 20101103, end: 20101112
  5. OXYCONTIN [Concomitant]
     Indication: CANCER PAIN
     Route: 048
     Dates: start: 20101020, end: 20101103
  6. AVAPRO [Concomitant]
     Route: 048
  7. LANSOPRAZOLE [Concomitant]
     Route: 048
  8. DECADRON [Concomitant]
     Indication: MALAISE
     Route: 048
     Dates: start: 20100916, end: 20101103
  9. ANPEC TAKEDA [Concomitant]
     Indication: CANCER PAIN
     Route: 054
     Dates: start: 20101103, end: 20101112
  10. TAKEPRON [Concomitant]
     Route: 048
  11. OXINORM [Concomitant]
     Indication: CANCER PAIN
     Route: 048
     Dates: start: 20100923, end: 20101103
  12. DUROTEP TAKEDA [Concomitant]
     Indication: CANCER PAIN
     Route: 062
     Dates: start: 20101103, end: 20101112
  13. NOVORAPID [Concomitant]
     Route: 042
  14. LOBU [Concomitant]
     Indication: CANCER PAIN
     Route: 048
     Dates: start: 20100922, end: 20101103

REACTIONS (4)
  - PNEUMOCYSTIS JIROVECI PNEUMONIA [None]
  - INTERSTITIAL LUNG DISEASE [None]
  - HYPOALBUMINAEMIA [None]
  - DIARRHOEA [None]
